FAERS Safety Report 8394213-4 (Version None)
Quarter: 2012Q2

REPORT INFORMATION
  Report Type: 
  Country: None (occurrence: None)
  Receive Date: 20120530
  Receipt Date: 20120429
  Transmission Date: 20120825
  Serious: Yes (Death)
  Sender: FDA-Public Use
  Company Number: DE-BAYER-2012-026867

PATIENT
  Age: 82 Year
  Sex: Female
  Weight: 72 kg

DRUGS (4)
  1. BETA BLOCKING AGENTS [Concomitant]
  2. AVELOX [Suspect]
     Indication: PNEUMONIA
     Dosage: 400 MG, UNK
     Route: 042
  3. ENOXAPARIN SODIUM [Concomitant]
  4. ACE INHIBITOR NOS [Concomitant]

REACTIONS (1)
  - DEATH [None]
